FAERS Safety Report 12622945 (Version 1)
Quarter: 2016Q3

REPORT INFORMATION
  Report Type: Report from Study
  Country: US (occurrence: US)
  Receive Date: 20160804
  Receipt Date: 20160804
  Transmission Date: 20161109
  Serious: Yes (Other)
  Sender: FDA-Public Use
  Company Number: US-PFIZER INC-2016358873

PATIENT
  Age: 32 Year
  Sex: Female

DRUGS (2)
  1. ENBREL [Suspect]
     Active Substance: ETANERCEPT
     Dosage: UNK
     Route: 065
  2. HYDROCORTISONE. [Suspect]
     Active Substance: HYDROCORTISONE
     Indication: PRURITUS
     Dosage: UNK
     Route: 065

REACTIONS (6)
  - Herpes zoster [Unknown]
  - Staphylococcal infection [Unknown]
  - Acne [Unknown]
  - Herpes virus infection [Unknown]
  - Skin induration [Unknown]
  - Pruritus [Unknown]

NARRATIVE: CASE EVENT DATE: 201607
